FAERS Safety Report 10333044 (Version 2)
Quarter: 2014Q3

REPORT INFORMATION
  Report Type: Spontaneous
  Country: US (occurrence: US)
  Receive Date: 20140722
  Receipt Date: 20140731
  Transmission Date: 20150326
  Serious: Yes (Other)
  Sender: FDA-Public Use
  Company Number: CHPA2014US009602

PATIENT
  Age: 59 Year
  Sex: Female

DRUGS (2)
  1. PRIVATE LABEL STRENGTH UNKNOWN [Suspect]
     Active Substance: NICOTINE
     Indication: SMOKING CESSATION THERAPY
     Dosage: UNK
     Dates: start: 199812
  2. CONTROL STEP 3 7 MG [Suspect]
     Active Substance: NICOTINE
     Indication: SMOKING CESSATION THERAPY
     Dosage: 7 MG, QD
     Route: 062
     Dates: start: 20140711

REACTIONS (4)
  - Arthritis [Not Recovered/Not Resolved]
  - Fibromyalgia [Not Recovered/Not Resolved]
  - Panic attack [Recovered/Resolved]
  - Therapeutic response changed [Unknown]

NARRATIVE: CASE EVENT DATE: 20140715
